FAERS Safety Report 7203982-8 (Version None)
Quarter: 2010Q4

REPORT INFORMATION
  Report Type: 
  Country: None (occurrence: None)
  Receive Date: 20101220
  Receipt Date: 20101203
  Transmission Date: 20110411
  Serious: Yes (Other)
  Sender: FDA-Public Use
  Company Number: AUR-APL-2010-03058

PATIENT
  Sex: Female

DRUGS (6)
  1. SIMVASTATIN [Suspect]
     Dosage: 20MG-2DD-
  2. AMILORIDE HCL AND HYDROCHLOROTHIAZIDE [Concomitant]
  3. ATENOLOL ACETYLSALICYLIC ACID [Concomitant]
  4. OMEPRAZOLE [Concomitant]
  5. DICLOFENAC SODIUM [Concomitant]
  6. LEVOTHYROXINE SODIUM [Concomitant]

REACTIONS (1)
  - TENDON RUPTURE [None]
